FAERS Safety Report 22944498 (Version 4)
Quarter: 2023Q4

REPORT INFORMATION
  Report Type: Spontaneous
  Country: US (occurrence: MX)
  Receive Date: 20230914
  Receipt Date: 20231219
  Transmission Date: 20240109
  Serious: No
  Sender: FDA-Public Use
  Company Number: US-BRISTOL-MYERS SQUIBB COMPANY-2023-123682

PATIENT
  Age: 78 Year
  Sex: Male
  Weight: 83.9 kg

DRUGS (3)
  1. ELIQUIS [Suspect]
     Active Substance: APIXABAN
     Indication: Atrial fibrillation
     Route: 048
     Dates: start: 2019
  2. FLECAINIDE [Concomitant]
     Active Substance: FLECAINIDE
     Indication: Product used for unknown indication
     Dates: start: 2019
  3. METOPROLOL [Concomitant]
     Active Substance: METOPROLOL
     Indication: Product used for unknown indication
     Dates: start: 2019

REACTIONS (3)
  - Poor quality product administered [Unknown]
  - Suspected counterfeit product [Unknown]
  - Wound [Unknown]

NARRATIVE: CASE EVENT DATE: 20230201
